FAERS Safety Report 6568586-9 (Version None)
Quarter: 2010Q1

REPORT INFORMATION
  Report Type: 
  Country: None (occurrence: None)
  Receive Date: 20100203
  Receipt Date: 20100127
  Transmission Date: 20100710
  Serious: Yes (Other)
  Sender: FDA-Public Use
  Company Number: CHPA2010GR01998

PATIENT
  Sex: Female

DRUGS (2)
  1. COMTREX COLD+COUGH DAY (NCH) [Suspect]
     Indication: NASOPHARYNGITIS
     Dosage: 2 DF, UNK
     Route: 065
  2. LOBIVON [Concomitant]
     Indication: BLOOD PRESSURE
     Dosage: 1 DF, QD
     Route: 065

REACTIONS (2)
  - CHEST DISCOMFORT [None]
  - RESTLESSNESS [None]
